FAERS Safety Report 5227051-1 (Version None)
Quarter: 2007Q1

REPORT INFORMATION
  Report Type: 
  Country: None (occurrence: None)
  Receive Date: 20070201
  Receipt Date: 20070201
  Transmission Date: 20070707
  Serious: Yes (Other)
  Sender: FDA-Public Use
  Company Number: None

PATIENT
  Age: 36 Year
  Sex: Female
  Weight: 81.6475 kg

DRUGS (2)
  1. BYETTA [Suspect]
     Indication: DIABETES MELLITUS
     Dosage: 5 MCG BID SQ
     Route: 058
     Dates: start: 20061214, end: 20070114
  2. BYETTA [Suspect]
     Indication: WEIGHT INCREASED
     Dosage: 5 MCG BID SQ
     Route: 058
     Dates: start: 20061214, end: 20070114

REACTIONS (7)
  - ABDOMINAL PAIN UPPER [None]
  - CONDITION AGGRAVATED [None]
  - HEPATIC STEATOSIS [None]
  - NAUSEA [None]
  - STEATORRHOEA [None]
  - TRANSAMINASES INCREASED [None]
  - VOMITING [None]
